FAERS Safety Report 25705882 (Version 2)
Quarter: 2025Q4

REPORT INFORMATION
  Report Type: Spontaneous
  Country: EU (occurrence: EU)
  Receive Date: 20250820
  Receipt Date: 20251022
  Transmission Date: 20260118
  Serious: Yes (Death, Hospitalization, Other)
  Sender: AUROBINDO
  Company Number: EU-AEMPS-1741324

PATIENT
  Age: 81 Year
  Sex: Male

DRUGS (2)
  1. AZACITIDINE [Interacting]
     Active Substance: AZACITIDINE
     Indication: Acute myeloid leukaemia
     Dosage: 1261.8 MILLIGRAM (TOTAL)
     Route: 058
     Dates: start: 20250204, end: 20250418
  2. VENETOCLAX [Interacting]
     Active Substance: VENETOCLAX
     Indication: Acute myeloid leukaemia
     Dosage: 8 GRAM (TOTAL)
     Route: 048
     Dates: start: 20250204, end: 20250420

REACTIONS (1)
  - Tumour lysis syndrome [Fatal]

NARRATIVE: CASE EVENT DATE: 20250423
